FAERS Safety Report 20905718 (Version 1)
Quarter: 2022Q2

REPORT INFORMATION
  Report Type: Spontaneous
  Country: US (occurrence: None)
  Receive Date: 20220601
  Receipt Date: 20220601
  Transmission Date: 20220720
  Serious: Yes (Life-Threatening, Other)
  Sender: FDA-Public Use
  Company Number: None

PATIENT
  Age: 29 Year
  Sex: Female
  Weight: 58.95 kg

DRUGS (5)
  1. MUPIROCIN [Suspect]
     Active Substance: MUPIROCIN
     Indication: Staphylococcal infection
     Dosage: OTHER QUANTITY : 22 G, TOTAL. 20 MG/1G;?FREQUENCY : TWICE A DAY;?
     Route: 061
  2. ADDERALL [Concomitant]
     Active Substance: AMPHETAMINE ASPARTATE\AMPHETAMINE SULFATE\DEXTROAMPHETAMINE SACCHARATE\DEXTROAMPHETAMINE SULFATE
  3. SUMATRIPTAN [Concomitant]
     Active Substance: SUMATRIPTAN
  4. EMGALITY [Concomitant]
     Active Substance: GALCANEZUMAB-GNLM
  5. VITAMINS [Concomitant]
     Active Substance: VITAMINS

REACTIONS (8)
  - Mania [None]
  - Paranoia [None]
  - Diarrhoea [None]
  - Heart rate abnormal [None]
  - Dyspnoea [None]
  - Heart rate increased [None]
  - Dizziness [None]
  - Renal failure [None]

NARRATIVE: CASE EVENT DATE: 20220415
